FAERS Safety Report 4667990-3 (Version None)
Quarter: 2005Q2

REPORT INFORMATION
  Report Type: 
  Country: None (occurrence: None)
  Receive Date: 20050520
  Receipt Date: 20050511
  Transmission Date: 20051028
  Serious: Yes (Hospitalization)
  Sender: FDA-Public Use
  Company Number: ES-ABBOTT-05P-144-0300326-00

PATIENT
  Age: 72 Year
  Sex: Male
  Weight: 70 kg

DRUGS (4)
  1. KLACID UNIDIA [Suspect]
     Indication: PNEUMONIA
     Route: 048
     Dates: start: 20050128, end: 20050128
  2. ACENOCOUMAROL [Interacting]
     Indication: ATRIAL FIBRILLATION
     Route: 048
     Dates: start: 20031001
  3. CARDISER RETARD [Concomitant]
     Indication: HYPERTENSION
     Route: 048
     Dates: start: 20050101
  4. TORSEMIDE [Concomitant]
     Indication: HYPERTENSION
     Route: 048
     Dates: start: 20050101

REACTIONS (3)
  - DRUG INTERACTION [None]
  - MALLORY-WEISS SYNDROME [None]
  - MELAENA [None]
